FAERS Safety Report 23492306 (Version 1)
Quarter: 2024Q1

REPORT INFORMATION
  Report Type: Report from Study
  Country: US (occurrence: US)
  Receive Date: 20240207
  Receipt Date: 20240207
  Transmission Date: 20240410
  Serious: No
  Sender: FDA-Public Use
  Company Number: US-ORG100014127-2023001064

PATIENT
  Age: 51 Year
  Sex: Female

DRUGS (8)
  1. LYSODREN [Suspect]
     Active Substance: MITOTANE
     Indication: Adrenal gland cancer
     Dosage: FOR 7 DAYS
     Route: 048
     Dates: start: 20231010
  2. LYSODREN [Suspect]
     Active Substance: MITOTANE
     Indication: Adrenal gland cancer
     Dosage: FOR 7 DAY
     Route: 048
  3. LYSODREN [Suspect]
     Active Substance: MITOTANE
     Indication: Adrenal gland cancer
     Route: 048
  4. Bupropion hydrochloride 150 MG TAB XL [Concomitant]
     Indication: Product used for unknown indication
  5. Chlorthalidone TAB 25 MG [Concomitant]
     Indication: Product used for unknown indication
  6. Citalopram TAB 20 mg [Concomitant]
     Indication: Product used for unknown indication
  7. Prochlorperazine TAB 10 mg [Concomitant]
     Indication: Product used for unknown indication
  8. Trazodone TAB 150 mg [Concomitant]
     Indication: Product used for unknown indication

REACTIONS (1)
  - Alopecia [Unknown]

NARRATIVE: CASE EVENT DATE: 20230101
